FAERS Safety Report 25067959 (Version 1)
Quarter: 2025Q1

REPORT INFORMATION
  Report Type: Spontaneous
  Country: US (occurrence: None)
  Receive Date: 20250311
  Receipt Date: 20250311
  Transmission Date: 20250409
  Serious: Yes (Death, Hospitalization)
  Sender: FDA-CTU
  Company Number: None

PATIENT
  Age: 60 Year
  Sex: Male

DRUGS (38)
  1. PIRFENIDONE [Suspect]
     Active Substance: PIRFENIDONE
     Indication: Interstitial lung disease
     Dosage: 801MG QD ORAL
     Route: 048
     Dates: start: 20230420, end: 20250217
  2. FLUOXETINE [Concomitant]
     Active Substance: FLUOXETINE HYDROCHLORIDE
  3. TRAMADOL [Concomitant]
     Active Substance: TRAMADOL
  4. TRAZODONE [Concomitant]
     Active Substance: TRAZODONE HYDROCHLORIDE
  5. WIXELA INHUB [Concomitant]
     Active Substance: FLUTICASONE PROPIONATE\SALMETEROL XINAFOATE
  6. OMEPRAZOLE [Concomitant]
     Active Substance: OMEPRAZOLE
  7. bisacodyl rec supp [Concomitant]
  8. lactylose [Concomitant]
  9. NPH INSULIN [Concomitant]
     Active Substance: INSULIN BEEF
  10. Regular insuln [Concomitant]
  11. LIDOCAINE PATCH [Concomitant]
     Active Substance: LIDOCAINE
  12. VITAMINS [Concomitant]
     Active Substance: VITAMINS
  13. PERIDEX [Concomitant]
     Active Substance: CHLORHEXIDINE GLUCONATE
  14. MIRALAX [Concomitant]
     Active Substance: POLYETHYLENE GLYCOL 3350
  15. SENNA [Concomitant]
     Active Substance: SENNOSIDES
  16. VITAMIN C [Concomitant]
     Active Substance: ASCORBIC ACID
  17. TYLENOL [Concomitant]
     Active Substance: ACETAMINOPHEN
  18. METFORMIN [Concomitant]
     Active Substance: METFORMIN HYDROCHLORIDE
  19. GLIPIZIDE [Concomitant]
     Active Substance: GLIPIZIDE
  20. PREDNISONE [Concomitant]
     Active Substance: PREDNISONE
  21. CELLCEPT [Concomitant]
     Active Substance: MYCOPHENOLATE MOFETIL
  22. DUONEB [Concomitant]
     Active Substance: ALBUTEROL SULFATE\IPRATROPIUM BROMIDE
  23. COMBIVENT RESPIMAT [Concomitant]
     Active Substance: ALBUTEROL SULFATE\IPRATROPIUM BROMIDE
  24. DILTIAZEM [Concomitant]
     Active Substance: DILTIAZEM
  25. furomemide [Concomitant]
  26. DOCUSATE SODIUM [Concomitant]
     Active Substance: DOCUSATE SODIUM
  27. VITAMIN D3 [Concomitant]
     Active Substance: CHOLECALCIFEROL
  28. GABAPENTIN [Concomitant]
     Active Substance: GABAPENTIN
  29. ATORVASTATIN [Concomitant]
     Active Substance: ATORVASTATIN
  30. JARDIANCE [Concomitant]
     Active Substance: EMPAGLIFLOZIN
  31. DULOXETINE [Concomitant]
     Active Substance: DULOXETINE
  32. SILDENAFIL [Concomitant]
     Active Substance: SILDENAFIL
  33. POTASSIUM CHLORIDE [Concomitant]
     Active Substance: POTASSIUM CHLORIDE
  34. FLONASE [Concomitant]
     Active Substance: FLUTICASONE PROPIONATE
  35. VITAMIN B12 [Concomitant]
     Active Substance: CYANOCOBALAMIN
  36. MELATONIN [Concomitant]
     Active Substance: MELATONIN
  37. ASPIRIN [Concomitant]
     Active Substance: ASPIRIN
  38. SEPTRA [Concomitant]
     Active Substance: SULFAMETHOXAZOLE\TRIMETHOPRIM

REACTIONS (2)
  - Acute respiratory failure [None]
  - Hypercapnia [None]

NARRATIVE: CASE EVENT DATE: 20250208
